FAERS Safety Report 10048321 (Version 1)
Quarter: 2014Q1

REPORT INFORMATION
  Report Type: Spontaneous
  Country: US (occurrence: US)
  Receive Date: 20140331
  Receipt Date: 20140331
  Transmission Date: 20141002
  Serious: Yes (Other)
  Sender: FDA-Public Use
  Company Number: US-GLAXOSMITHKLINE-A1066715A

PATIENT
  Age: 41 Year
  Sex: Female

DRUGS (3)
  1. WELLBUTRIN [Suspect]
     Indication: DEPRESSION
     Dosage: 150MG PER DAY
     Route: 048
     Dates: start: 2001
  2. KLONOPIN [Concomitant]
  3. AMBIEN [Concomitant]

REACTIONS (4)
  - Depression [Unknown]
  - Accidental overdose [Unknown]
  - Road traffic accident [Unknown]
  - Drug ineffective [Unknown]
